FAERS Safety Report 4825493-7 (Version None)
Quarter: 2005Q4

REPORT INFORMATION
  Report Type: 
  Country: None (occurrence: None)
  Receive Date: 20051111
  Receipt Date: 20050601
  Transmission Date: 20060501
  Serious: No
  Sender: FDA-Public Use
  Company Number: US-GLAXOSMITHKLINE-A0560741A

PATIENT
  Sex: Male

DRUGS (4)
  1. TRIZIVIR [Suspect]
     Indication: HIV INFECTION
     Route: 048
  2. CLINDAMYCIN [Concomitant]
  3. HUMALOG [Concomitant]
  4. HERBAL TEA [Concomitant]

REACTIONS (1)
  - DRUG SCREEN FALSE POSITIVE [None]
